FAERS Safety Report 25518500 (Version 1)
Quarter: 2025Q3

REPORT INFORMATION
  Report Type: Spontaneous
  Country: US (occurrence: US)
  Receive Date: 20250704
  Receipt Date: 20250704
  Transmission Date: 20251020
  Serious: Yes (Other)
  Sender: INSMED
  Company Number: US-INSMED, INC.-2025-02502-US

PATIENT

DRUGS (3)
  1. ARIKAYCE [Suspect]
     Active Substance: AMIKACIN
     Indication: Mycobacterium abscessus infection
     Route: 055
  2. NUZYRA [Concomitant]
     Active Substance: OMADACYCLINE
     Indication: Mycobacterium abscessus infection
     Dosage: 150 MILLIGRAM, QD (MIDNIGHT)
     Route: 065
  3. CLOFAZIMINE [Concomitant]
     Active Substance: CLOFAZIMINE
     Indication: Mycobacterium abscessus infection
     Route: 065

REACTIONS (2)
  - Mycobacterium avium complex infection [Not Recovered/Not Resolved]
  - Off label use [Unknown]
